FAERS Safety Report 12052505 (Version 4)
Quarter: 2016Q1

REPORT INFORMATION
  Report Type: Spontaneous
  Country: IN (occurrence: IN)
  Receive Date: 20160209
  Receipt Date: 20160323
  Transmission Date: 20160526
  Serious: Yes (Hospitalization)
  Sender: FDA-Public Use
  Company Number: IN-MYLANLABS-2016M1005674

PATIENT

DRUGS (6)
  1. ASTHALIN                           /00012201/ [Concomitant]
     Indication: ASTHMA
     Dosage: UNK
  2. RANTAC [Concomitant]
     Active Substance: RANITIDINE HYDROCHLORIDE
     Indication: PRODUCT USED FOR UNKNOWN INDICATION
     Dosage: 150 MG, BID
     Route: 048
     Dates: start: 20151223
  3. HERTRAZ [Suspect]
     Active Substance: TRASTUZUMAB
     Indication: BREAST CANCER
     Dosage: 120 MG, QW
     Route: 042
     Dates: start: 20151224
  4. DECMAX [Concomitant]
     Indication: PRODUCT USED FOR UNKNOWN INDICATION
     Dosage: 8 MG, BID
     Route: 048
     Dates: start: 20151223
  5. AMLONG [Concomitant]
     Indication: BLOOD PRESSURE ABNORMAL
     Dosage: 5 MG, QD
     Route: 048
     Dates: start: 20151211
  6. STRITOXOL [Suspect]
     Active Substance: PACLITAXEL
     Indication: BREAST CANCER
     Dosage: 130 MG, QW
     Route: 042
     Dates: start: 20151224

REACTIONS (6)
  - Fungal pharyngitis [Recovered/Resolved]
  - Pyrexia [Recovered/Resolved]
  - Hypoaesthesia [Recovering/Resolving]
  - Dry skin [Not Recovered/Not Resolved]
  - Cough [Recovered/Resolved]
  - Fatigue [Recovered/Resolved]

NARRATIVE: CASE EVENT DATE: 20151224
